APPROVED DRUG PRODUCT: VITAMIN K1
Active Ingredient: PHYTONADIONE
Strength: 10MG/ML
Dosage Form/Route: INJECTABLE;INJECTION
Application: A087955 | Product #001 | TE Code: AB1
Applicant: HOSPIRA INC
Approved: Jul 25, 1983 | RLD: Yes | RS: Yes | Type: RX